FAERS Safety Report 6219828-0 (Version None)
Quarter: 2009Q2

REPORT INFORMATION
  Report Type: 
  Country: None (occurrence: None)
  Receive Date: 20090605
  Receipt Date: 20090522
  Transmission Date: 20091009
  Serious: Yes (Hospitalization, Other)
  Sender: FDA-Public Use
  Company Number: POMP-1000616

PATIENT
  Age: 1 Year
  Sex: Female

DRUGS (6)
  1. MYOZYME [Suspect]
     Indication: GLYCOGEN STORAGE DISEASE TYPE II
     Dosage: 20 MG/KG, Q2W, INTRAVENOUS
     Route: 042
     Dates: start: 20081218
  2. TYLENOL [Concomitant]
  3. BENADRYL [Concomitant]
  4. CORTICOSTEROIDS [Concomitant]
  5. DIGOXIN (BETA-ACETYLDIGOXIN) [Concomitant]
  6. RANITIDINE [Concomitant]

REACTIONS (7)
  - ATELECTASIS [None]
  - BLOOD IMMUNOGLOBULIN G INCREASED [None]
  - CONDITION AGGRAVATED [None]
  - GASTROOESOPHAGEAL REFLUX DISEASE [None]
  - NO THERAPEUTIC RESPONSE [None]
  - PNEUMONIA ASPIRATION [None]
  - VOMITING [None]
